FAERS Safety Report 8319065-X (Version None)
Quarter: 2012Q2

REPORT INFORMATION
  Report Type: 
  Country: None (occurrence: None)
  Receive Date: 20120427
  Receipt Date: 20120420
  Transmission Date: 20120825
  Serious: Yes (Hospitalization, Other)
  Sender: FDA-Public Use
  Company Number: US-PFIZER INC-2012098608

PATIENT
  Sex: Female
  Weight: 88.435 kg

DRUGS (3)
  1. THYROID [Concomitant]
     Indication: THYROID DISORDER
     Dosage: UNK 2X/DAY
  2. ACETYLSALICYLIC ACID [Concomitant]
     Dosage: 81 MG,DAILY
  3. PREPARATION H HEMORRHOIDAL SUPPOSITORIES [Suspect]
     Indication: CONSTIPATION
     Dosage: UNK AS NEEDED

REACTIONS (1)
  - CEREBROVASCULAR ACCIDENT [None]
